FAERS Safety Report 20578765 (Version 1)
Quarter: 2022Q1

REPORT INFORMATION
  Report Type: Spontaneous
  Country: ES (occurrence: ES)
  Receive Date: 20220310
  Receipt Date: 20220310
  Transmission Date: 20220423
  Serious: Yes (Hospitalization, Other)
  Sender: FDA-Public Use
  Company Number: None

PATIENT
  Age: 87 Year
  Sex: Male

DRUGS (10)
  1. FENTANYL TRANSDERMAL SYSTEM [Suspect]
     Active Substance: FENTANYL
     Indication: Lung neoplasm malignant
     Dosage: 1 DOSAGE FORM, Q3D (1 PATCH EVERY 72 HOURS))
     Route: 050
     Dates: start: 20200813, end: 20200818
  2. LORAZEPAM [Suspect]
     Active Substance: LORAZEPAM
     Indication: Cardiac disorder
     Dosage: 50 TABLETS (1.0 MG EVERY/24 H NIGHT)
     Route: 048
     Dates: start: 20191118
  3. BECLOMETHASONE DIPROPIONATE\FORMOTEROL FUMARATE\GLYCOPYRROLATE [Concomitant]
     Active Substance: BECLOMETHASONE DIPROPIONATE\FORMOTEROL FUMARATE\GLYCOPYRROLATE
     Indication: Obstructive airways disorder
     Dosage: 2.0 PUFF  C/12 H
     Route: 050
     Dates: start: 20190917
  4. FUROSEMIDE [Concomitant]
     Active Substance: FUROSEMIDE
     Indication: Cardiac disorder
     Dosage: 20.0 MG DE
     Route: 048
  5. FENTANYL [Concomitant]
     Active Substance: FENTANYL
     Indication: Bronchitis chronic
     Dosage: 1.0 PATCH C/72 HOURS
     Dates: start: 20191119
  6. ATROVENT [Concomitant]
     Active Substance: IPRATROPIUM BROMIDE
     Indication: Bronchitis chronic
     Dosage: 40.0 MCG EVERY 6 HOURS (1 INHALER OF 200 DOSES)
     Dates: start: 20170209
  7. DUTASTERIDE\TAMSULOSIN [Concomitant]
     Active Substance: DUTASTERIDE\TAMSULOSIN
     Indication: Benign prostatic hyperplasia
     Dosage: 1.0 CAPSULE LUNCH (30 CAPSULES)
     Route: 048
     Dates: start: 20191111
  8. ASPIRIN [Concomitant]
     Active Substance: ASPIRIN
     Indication: Nephropathy
     Dosage: 30 TABLETS (100MG C.O)
     Route: 048
     Dates: start: 20160830
  9. OMEPRAZOLE [Concomitant]
     Active Substance: OMEPRAZOLE
     Indication: Nephropathy
     Dosage: 20.0 MG A-DE (56 CAPSULES (BOTTLE))
     Route: 048
     Dates: start: 20160831
  10. BARNIDIPINE HYDROCHLORIDE [Concomitant]
     Active Substance: BARNIDIPINE HYDROCHLORIDE
     Indication: Cardiac disorder
     Dosage: 20.0 MG DE
     Route: 048
     Dates: start: 20180125

REACTIONS (1)
  - Ileus paralytic [Recovered/Resolved]

NARRATIVE: CASE EVENT DATE: 20200818
